FAERS Safety Report 22021580 (Version 1)
Quarter: 2023Q1

REPORT INFORMATION
  Report Type: Spontaneous
  Country: US (occurrence: None)
  Receive Date: 20230222
  Receipt Date: 20230222
  Transmission Date: 20230418
  Serious: No
  Sender: FDA-Public Use
  Company Number: 2023A025955

PATIENT
  Age: 32 Year
  Sex: Female

DRUGS (4)
  1. FARXIGA [Suspect]
     Active Substance: DAPAGLIFLOZIN PROPANEDIOL
     Route: 048
  2. TARPEYO [Suspect]
     Active Substance: BUDESONIDE
     Indication: Glomerulonephritis chronic
     Route: 048
     Dates: start: 20220707
  3. TARPEYO [Suspect]
     Active Substance: BUDESONIDE
     Indication: Glomerulonephritis chronic
     Route: 048
  4. UNSPECILLED BLOOD PRESSURE [Concomitant]

REACTIONS (11)
  - Dehydration [Not Recovered/Not Resolved]
  - Abdominal discomfort [Recovering/Resolving]
  - Acne [Recovered/Resolved]
  - Swelling face [Recovering/Resolving]
  - Blood pressure decreased [Recovered/Resolved]
  - Weight increased [Recovering/Resolving]
  - Cardiac disorder [Unknown]
  - Lung disorder [Unknown]
  - Dyspnoea [Recovering/Resolving]
  - Peripheral swelling [Recovering/Resolving]
  - Headache [Recovering/Resolving]

NARRATIVE: CASE EVENT DATE: 20220701
